FAERS Safety Report 24096382 (Version 1)
Quarter: 2024Q3

REPORT INFORMATION
  Report Type: Spontaneous
  Country: CZ (occurrence: CZ)
  Receive Date: 20240716
  Receipt Date: 20240716
  Transmission Date: 20241017
  Serious: Yes (Other)
  Sender: RANBAXY
  Company Number: CZ-SUN PHARMACEUTICAL INDUSTRIES LTD-2024R1-456257

PATIENT
  Age: 62 Year

DRUGS (2)
  1. MEDROXYPROGESTERONE [Suspect]
     Active Substance: MEDROXYPROGESTERONE
     Indication: Hormone therapy
     Dosage: 600 MILLIGRAM
     Route: 065
  2. AXITINIB [Suspect]
     Active Substance: AXITINIB
     Indication: Hormone therapy
     Dosage: UNK
     Route: 065

REACTIONS (1)
  - Disease progression [Unknown]
